FAERS Safety Report 23744330 (Version 1)
Quarter: 2024Q2

REPORT INFORMATION
  Report Type: Spontaneous
  Country: US (occurrence: None)
  Receive Date: 20240414
  Receipt Date: 20240414
  Transmission Date: 20240715
  Serious: No
  Sender: FDA-Public Use
  Company Number: None

PATIENT
  Age: 41 Year
  Sex: Male
  Weight: 98.1 kg

DRUGS (1)
  1. ZEPBOUND [Suspect]
     Active Substance: TIRZEPATIDE
     Dates: start: 20240101

REACTIONS (4)
  - Product availability issue [None]
  - Therapy interrupted [None]
  - Adverse drug reaction [None]
  - Product complaint [None]

NARRATIVE: CASE EVENT DATE: 20240414
